FAERS Safety Report 8908160 (Version 2)
Quarter: 2013Q1

REPORT INFORMATION
  Report Type: Report from Study
  Country: JP (occurrence: JP)
  Receive Date: 20121114
  Receipt Date: 20130204
  Transmission Date: 20140127
  Serious: Yes (Death, Other)
  Sender: FDA-Public Use
  Company Number: PHHY2012JP104618

PATIENT
  Age: 63 Year
  Sex: Male

DRUGS (10)
  1. AFINITOR [Suspect]
     Indication: RENAL CELL CARCINOMA
     Dosage: 10 MG, DAILY
     Route: 048
     Dates: start: 20110302, end: 20110308
  2. AFINITOR [Suspect]
     Dosage: 5 MG, DAILY
     Route: 048
     Dates: start: 20110309, end: 20110315
  3. AFINITOR [Suspect]
     Dosage: 5 MG, DAILY
     Route: 048
     Dates: start: 20110325, end: 20110405
  4. AFINITOR [Suspect]
     Dosage: 5 MG, DAILY
     Route: 048
     Dates: start: 20110418, end: 20110621
  5. AFINITOR [Suspect]
     Dosage: 5 MG, DAILY
     Route: 048
     Dates: start: 20110629, end: 20110716
  6. AFINITOR [Suspect]
     Dosage: 5 MG, DAILY
     Route: 048
     Dates: start: 20110720, end: 20110825
  7. AFINITOR [Suspect]
     Dosage: 10 MG, DAILY
     Route: 048
     Dates: start: 20110826, end: 20111018
  8. AFINITOR [Suspect]
     Dosage: 5 MG, DAILY
     Route: 048
     Dates: start: 20111019, end: 20111102
  9. CALONAL [Concomitant]
     Indication: METASTATIC RENAL CELL CARCINOMA
     Dosage: 1200 MG, DAILY
     Route: 048
     Dates: start: 20111020, end: 20111222
  10. AMOBAN [Concomitant]
     Indication: METASTASES TO THORAX
     Dosage: 10 MG, UNK
     Route: 048
     Dates: start: 20111020, end: 20111222

REACTIONS (5)
  - Renal cell carcinoma [Fatal]
  - Malignant neoplasm progression [Fatal]
  - C-reactive protein increased [Fatal]
  - Malaise [Not Recovered/Not Resolved]
  - Insomnia [Not Recovered/Not Resolved]
